FAERS Safety Report 9283691 (Version 1)
Quarter: 2013Q2

REPORT INFORMATION
  Report Type: Spontaneous
  Country: PL (occurrence: PL)
  Receive Date: 20130510
  Receipt Date: 20130510
  Transmission Date: 20140414
  Serious: Yes (Death)
  Sender: FDA-Public Use
  Company Number: PL-PFIZER INC-2013144754

PATIENT
  Age: 73 Year
  Sex: Male
  Weight: 62 kg

DRUGS (2)
  1. CARBOPLATIN [Suspect]
     Indication: LUNG NEOPLASM MALIGNANT
     Dosage: 301.36 MG, 1X/DAY
     Route: 042
     Dates: start: 20130219, end: 20130219
  2. NAVELBINE ^PIERRE FABRE^ [Suspect]
     Indication: LUNG NEOPLASM MALIGNANT
     Dosage: 51.13 MG, 1X/DAY
     Route: 042
     Dates: start: 20130219, end: 20130226

REACTIONS (3)
  - Febrile neutropenia [Fatal]
  - Disease progression [Fatal]
  - Lung neoplasm malignant [Fatal]
